APPROVED DRUG PRODUCT: SULFINPYRAZONE
Active Ingredient: SULFINPYRAZONE
Strength: 100MG
Dosage Form/Route: TABLET;ORAL
Application: A087769 | Product #001
Applicant: IVAX PHARMACEUTICALS INC
Approved: Jun 1, 1982 | RLD: No | RS: No | Type: DISCN